FAERS Safety Report 6786759-7 (Version None)
Quarter: 2010Q2

REPORT INFORMATION
  Report Type: 
  Country: None (occurrence: None)
  Receive Date: 20100623
  Receipt Date: 20100603
  Transmission Date: 20101027
  Serious: Yes (Other)
  Sender: FDA-Public Use
  Company Number: US-ASTRAZENECA-2010SE28833

PATIENT
  Age: 74 Year
  Sex: Female
  Weight: 61.2 kg

DRUGS (8)
  1. NEXIUM [Suspect]
     Indication: GASTROOESOPHAGEAL REFLUX DISEASE
     Route: 048
  2. TOVIAZ [Suspect]
     Indication: BLADDER DISORDER
     Route: 048
     Dates: start: 20100517, end: 20100531
  3. TOVIAZ [Suspect]
     Route: 048
     Dates: start: 20100601, end: 20100601
  4. ATENOLOL [Concomitant]
     Indication: BLOOD PRESSURE ABNORMAL
  5. AVAPRO [Concomitant]
     Indication: BLOOD PRESSURE ABNORMAL
  6. ZOCOR [Concomitant]
     Indication: BLOOD CHOLESTEROL ABNORMAL
  7. SYNTHROID [Concomitant]
     Indication: THYROID DISORDER
  8. DYAZIDE [Concomitant]
     Indication: FLUID RETENTION

REACTIONS (4)
  - ARTHRITIS [None]
  - BLADDER SPASM [None]
  - OSTEOPENIA [None]
  - POLLAKIURIA [None]
